FAERS Safety Report 7328185-8 (Version None)
Quarter: 2011Q1

REPORT INFORMATION
  Report Type: 
  Country: None (occurrence: None)
  Receive Date: 20110303
  Receipt Date: 20110303
  Transmission Date: 20110831
  Serious: Yes (Hospitalization)
  Sender: FDA-Public Use
  Company Number: PHHO2007DE20768

PATIENT
  Sex: Male
  Weight: 61 kg

DRUGS (15)
  1. BISO-HENNIG [Concomitant]
  2. TILIDIN [Concomitant]
  3. METAMIZOL [Concomitant]
  4. ALLOPURINOL [Concomitant]
  5. SULTANOL [Concomitant]
  6. PLACEBO [Suspect]
     Indication: CARCINOID TUMOUR
     Dosage: PLACEBO
     Route: 048
     Dates: start: 20070821
  7. MOLSIDOMINE [Concomitant]
  8. OMEPRAZOLE [Concomitant]
  9. TORSEMIDE [Concomitant]
  10. TILICOMP BETA [Concomitant]
  11. MICARDIS [Concomitant]
  12. COLESTYRAMIN [Concomitant]
  13. MARCUMAR [Concomitant]
  14. SANDOSTATIN LAR [Suspect]
     Indication: CARCINOID SYNDROME
     Dosage: DOUBLE BLIND
     Route: 048
     Dates: start: 20070821
  15. BISOPROLOL FUMARATE [Concomitant]

REACTIONS (2)
  - ATRIAL FIBRILLATION [None]
  - DYSPNOEA [None]
